FAERS Safety Report 17256699 (Version 1)
Quarter: 2020Q1

REPORT INFORMATION
  Report Type: Spontaneous
  Country: US (occurrence: US)
  Receive Date: 20200109
  Receipt Date: 20200109
  Transmission Date: 20200409
  Serious: Yes (Life-Threatening, Hospitalization, Disabling)
  Sender: FDA-Public Use
  Company Number: None

PATIENT
  Age: 66 Year
  Sex: Male
  Weight: 130 kg

DRUGS (19)
  1. CLONAZEPAM. [Concomitant]
     Active Substance: CLONAZEPAM
     Dates: start: 20110309, end: 20160113
  2. FERROUS SULFATE. [Concomitant]
     Active Substance: FERROUS SULFATE
     Dates: start: 20111021, end: 20160104
  3. METOCLOPRAMIDE. [Concomitant]
     Active Substance: METOCLOPRAMIDE
     Dates: start: 20110221, end: 20160901
  4. FENOFIBRIC ACID. [Concomitant]
     Active Substance: FENOFIBRIC ACID
     Dates: start: 20130719, end: 20160104
  5. LOSARTAN. [Concomitant]
     Active Substance: LOSARTAN
     Dates: start: 20141105, end: 20170617
  6. ISOSORBIDE MONONITRATE. [Concomitant]
     Active Substance: ISOSORBIDE MONONITRATE
     Dates: start: 20150215, end: 20160516
  7. NORCO [Concomitant]
     Active Substance: ACETAMINOPHEN\HYDROCODONE BITARTRATE
     Dates: start: 20140914, end: 20160111
  8. LEVOTHYROXINE. [Concomitant]
     Active Substance: LEVOTHYROXINE
     Dates: start: 20121011
  9. OMEPRAZOLE. [Concomitant]
     Active Substance: OMEPRAZOLE
     Dates: start: 20140922, end: 20170208
  10. ALLOPURINOL. [Concomitant]
     Active Substance: ALLOPURINOL
     Dates: start: 20150107, end: 20161024
  11. AMITRYPTILINE [Concomitant]
     Active Substance: AMITRIPTYLINE
     Dates: start: 20110221, end: 20160411
  12. CYMBALTA [Concomitant]
     Active Substance: DULOXETINE HYDROCHLORIDE
     Dates: start: 20091218, end: 20181018
  13. TRAVATAN [Concomitant]
     Active Substance: TRAVOPROST
     Dates: start: 20111013, end: 20140808
  14. ASPIRIN. [Concomitant]
     Active Substance: ASPIRIN
     Dates: start: 20110409
  15. ATORVASTATIN [Concomitant]
     Active Substance: ATORVASTATIN
     Dates: start: 20150608
  16. FINASTERIDE. [Concomitant]
     Active Substance: FINASTERIDE
     Dates: start: 20130125, end: 20180414
  17. FOLIC ACID. [Concomitant]
     Active Substance: FOLIC ACID
     Dates: start: 20150804, end: 20151226
  18. METOPROLOL SUCCINATE. [Concomitant]
     Active Substance: METOPROLOL SUCCINATE
     Dates: start: 20140108, end: 20151119
  19. HUMIRA [Suspect]
     Active Substance: ADALIMUMAB
     Indication: ANKYLOSING SPONDYLITIS
     Dosage: ?          OTHER FREQUENCY:EVERY OTHER WEEK;?
     Route: 058
     Dates: start: 20150425, end: 20160120

REACTIONS (4)
  - Brain abscess [None]
  - Listeriosis [None]
  - Hallucination, auditory [None]
  - Gram stain positive [None]

NARRATIVE: CASE EVENT DATE: 20160114
